FAERS Safety Report 17315268 (Version 1)
Quarter: 2020Q1

REPORT INFORMATION
  Report Type: Spontaneous
  Country: US (occurrence: US)
  Receive Date: 20200108
  Receipt Date: 20200108
  Transmission Date: 20200409
  Serious: Yes (Hospitalization)
  Sender: FDA-Public Use
  Company Number: None

PATIENT
  Age: 65 Year
  Sex: Female

DRUGS (10)
  1. LEVOTHYROXINE. [Concomitant]
     Active Substance: LEVOTHYROXINE
  2. METOPROLOL. [Concomitant]
     Active Substance: METOPROLOL
  3. TORSEMIDE. [Concomitant]
     Active Substance: TORSEMIDE
  4. AMBRISENTAN 10MG TABLETS 30/BO: 10MG [Suspect]
     Active Substance: AMBRISENTAN
     Indication: PULMONARY ARTERIAL HYPERTENSION
     Route: 048
     Dates: start: 201705
  5. SILDENAFIL. [Concomitant]
     Active Substance: SILDENAFIL
  6. PREDNISONE. [Concomitant]
     Active Substance: PREDNISONE
  7. ALLOPURINOL. [Concomitant]
     Active Substance: ALLOPURINOL
  8. FERROUS SULFATE. [Concomitant]
     Active Substance: FERROUS SULFATE
  9. AMLODIPINE [Concomitant]
     Active Substance: AMLODIPINE BESYLATE
  10. CARDURA [Concomitant]
     Active Substance: DOXAZOSIN MESYLATE

REACTIONS (4)
  - Weight increased [None]
  - Hypophagia [None]
  - Cardiac failure [None]
  - Fatigue [None]

NARRATIVE: CASE EVENT DATE: 20191221
